FAERS Safety Report 4617383-X (Version None)
Quarter: 2005Q1

REPORT INFORMATION
  Report Type: 
  Country: None (occurrence: None)
  Receive Date: 20050323
  Receipt Date: 20050317
  Transmission Date: 20050727
  Serious: Yes (Hospitalization)
  Sender: FDA-Public Use
  Company Number: US-ABBOTT-05P-163-0294488-00

PATIENT
  Age: 49 Year
  Sex: Male
  Weight: 72.731 kg

DRUGS (1)
  1. HUMIRA [Suspect]
     Indication: RHEUMATOID ARTHRITIS
     Route: 058
     Dates: start: 20040101, end: 20050101

REACTIONS (6)
  - ANAEMIA [None]
  - ANTINUCLEAR ANTIBODY POSITIVE [None]
  - LEUKOPENIA [None]
  - PANCREATITIS [None]
  - PERICARDIAL EFFUSION [None]
  - PERICARDITIS [None]
